FAERS Safety Report 8058469-X (Version None)
Quarter: 2012Q1

REPORT INFORMATION
  Report Type: 
  Country: None (occurrence: None)
  Receive Date: 20120120
  Receipt Date: 20120113
  Transmission Date: 20120608
  Serious: Yes (Other)
  Sender: FDA-Public Use
  Company Number: JP-PFIZER INC-2012011161

PATIENT
  Age: 84 Year
  Sex: Female

DRUGS (1)
  1. LYRICA [Suspect]
     Dosage: 75 MG, 1X/DAY
     Route: 048
     Dates: start: 20111201

REACTIONS (2)
  - RENAL FUNCTION TEST ABNORMAL [None]
  - BLOOD UREA INCREASED [None]
